FAERS Safety Report 6999637-5 (Version None)
Quarter: 2010Q3

REPORT INFORMATION
  Report Type: 
  Country: None (occurrence: None)
  Receive Date: 20100920
  Receipt Date: 20070531
  Transmission Date: 20110219
  Serious: Yes (Other)
  Sender: FDA-Public Use
  Company Number: US-ASTRAZENECA-2006UW21769

PATIENT
  Sex: Female
  Weight: 81.2 kg

DRUGS (9)
  1. SEROQUEL [Suspect]
     Indication: SCHIZOPHRENIA, PARANOID TYPE
     Dosage: 600 - 900 MG
     Route: 048
     Dates: start: 20050118
  2. SEROQUEL [Suspect]
     Indication: POST-TRAUMATIC STRESS DISORDER
     Dosage: 600 - 900 MG
     Route: 048
     Dates: start: 20050118
  3. SEROQUEL [Suspect]
     Indication: BIPOLAR I DISORDER
     Dosage: 600 - 900 MG
     Route: 048
     Dates: start: 20050118
  4. SEROQUEL [Suspect]
     Dosage: 50 MG TO 200 MG THREE TIMES A DAY
     Route: 048
     Dates: start: 20050118, end: 20050729
  5. SEROQUEL [Suspect]
     Dosage: 50 MG TO 200 MG THREE TIMES A DAY
     Route: 048
     Dates: start: 20050118, end: 20050729
  6. SEROQUEL [Suspect]
     Dosage: 50 MG TO 200 MG THREE TIMES A DAY
     Route: 048
     Dates: start: 20050118, end: 20050729
  7. LEXAPRO [Concomitant]
     Route: 048
     Dates: start: 20050118
  8. ACETAMINOPHEN AND HYDROCODONE BITARTRATE [Concomitant]
     Dates: start: 20040514
  9. IBUPROFEN [Concomitant]
     Dates: start: 20050725

REACTIONS (1)
  - PANCREATITIS [None]
